FAERS Safety Report 25778413 (Version 1)
Quarter: 2025Q3

REPORT INFORMATION
  Report Type: Other
  Country: GB (occurrence: GB)
  Receive Date: 20250909
  Receipt Date: 20250909
  Transmission Date: 20251021
  Serious: Yes (Other)
  Sender: MACLEODS
  Company Number: GB-MHRA-TPP18141910C12052034YC1756666675551

PATIENT

DRUGS (1)
  1. TAMSULOSIN [Suspect]
     Active Substance: TAMSULOSIN
     Indication: Ill-defined disorder
     Route: 065

REACTIONS (1)
  - Syncope [Recovered/Resolved]
